FAERS Safety Report 8468889-7 (Version None)
Quarter: 2012Q2

REPORT INFORMATION
  Report Type: 
  Country: None (occurrence: None)
  Receive Date: 20120626
  Receipt Date: 20101213
  Transmission Date: 20120825
  Serious: Yes (Death, Other)
  Sender: FDA-Public Use
  Company Number: US-ROCHE-748805

PATIENT
  Sex: Female

DRUGS (4)
  1. AVASTIN [Suspect]
     Indication: METASTATIC GASTRIC CANCER
     Dosage: DOSE, ROUTE, FORM AND FREQUENCY NOT PROVIDED.
     Route: 065
     Dates: start: 20100301, end: 20100401
  2. CISPLATIN [Suspect]
     Indication: METASTATIC GASTRIC CANCER
     Dosage: DOSE, ROUTE, FORM AND FREQUENCY NOT PROVIDED.
     Route: 065
     Dates: start: 20100301, end: 20100401
  3. IRINOTECAN HCL [Suspect]
     Indication: METASTATIC GASTRIC CANCER
     Dosage: DOSE, ROUTE, FORM AND FREQUENCY NOT PROVIDED.
     Route: 065
  4. FLUOROURACIL [Suspect]
     Indication: METASTATIC GASTRIC CANCER
     Dosage: DOSE, ROUTE, FORM AND FREQUENCY NOT PROVIDED.
     Route: 065

REACTIONS (5)
  - PANCYTOPENIA [None]
  - PANCREATIC CARCINOMA METASTATIC [None]
  - HYPOTENSION [None]
  - ANAEMIA [None]
  - DIZZINESS [None]
